FAERS Safety Report 9265521 (Version 1)
Quarter: 2013Q2

REPORT INFORMATION
  Report Type: Report from Study
  Country: MX (occurrence: MX)
  Receive Date: 20130501
  Receipt Date: 20130501
  Transmission Date: 20140414
  Serious: Yes (Other)
  Sender: FDA-Public Use
  Company Number: PHHY2013MX042828

PATIENT
  Age: 9 Year
  Sex: Male

DRUGS (3)
  1. RITALIN LA [Suspect]
     Indication: ATTENTION DEFICIT/HYPERACTIVITY DISORDER
     Dosage: 1 DF, DAILY
     Route: 048
  2. RITALIN LA [Suspect]
     Dosage: 1 DF, DAILY
     Route: 048
  3. CARBAMAZEPINE [Concomitant]
     Indication: PSYCHOMOTOR HYPERACTIVITY
     Dosage: 4 DF, DAILY

REACTIONS (6)
  - Amoebiasis [Recovered/Resolved]
  - Diarrhoea haemorrhagic [Recovered/Resolved]
  - Pharyngitis [Recovered/Resolved]
  - Personality disorder [Recovered/Resolved]
  - Irritability [Recovered/Resolved]
  - Disturbance in social behaviour [Recovered/Resolved]
